FAERS Safety Report 24541359 (Version 11)
Quarter: 2025Q1

REPORT INFORMATION
  Report Type: Report from Study
  Country: ES (occurrence: ES)
  Receive Date: 20241023
  Receipt Date: 20250219
  Transmission Date: 20250409
  Serious: Yes (Death, Life-Threatening, Hospitalization, Other)
  Sender: ABBVIE
  Company Number: ES-ABBVIE-5801702

PATIENT
  Age: 58 Year
  Sex: Male

DRUGS (4)
  1. CARBIDOPA\LEVODOPA [Suspect]
     Active Substance: CARBIDOPA\LEVODOPA
     Indication: Parkinson^s disease
     Route: 058
     Dates: start: 20240607
  2. CARBIDOPA\LEVODOPA [Suspect]
     Active Substance: CARBIDOPA\LEVODOPA
     Route: 058
     Dates: start: 202411
  3. CARBIDOPA\LEVODOPA [Suspect]
     Active Substance: CARBIDOPA\LEVODOPA
     Route: 058
     Dates: start: 202406
  4. CARBIDOPA\LEVODOPA [Suspect]
     Active Substance: CARBIDOPA\LEVODOPA
     Route: 058

REACTIONS (20)
  - Pneumonia [Fatal]
  - Faecal vomiting [Recovered/Resolved]
  - Gastrointestinal motility disorder [Not Recovered/Not Resolved]
  - Dyskinesia [Unknown]
  - Depressed level of consciousness [Not Recovered/Not Resolved]
  - Pancreatectomy [Unknown]
  - Abdominal pain [Not Recovered/Not Resolved]
  - Sepsis [Not Recovered/Not Resolved]
  - Infection [Recovering/Resolving]
  - Abdominal adhesions [Recovering/Resolving]
  - Dyskinesia [Not Recovered/Not Resolved]
  - Weight decreased [Unknown]
  - Wound dehiscence [Unknown]
  - Device issue [Unknown]
  - Hypoglycaemia [Recovered/Resolved]
  - Functional gastrointestinal disorder [Recovering/Resolving]
  - Device issue [Unknown]
  - Musculoskeletal stiffness [Not Recovered/Not Resolved]
  - Pneumonia [Not Recovered/Not Resolved]
  - Metastases to liver [Not Recovered/Not Resolved]

NARRATIVE: CASE EVENT DATE: 20240101
